FAERS Safety Report 23063504 (Version 6)
Quarter: 2024Q1

REPORT INFORMATION
  Report Type: Spontaneous
  Country: US (occurrence: US)
  Receive Date: 20231013
  Receipt Date: 20240201
  Transmission Date: 20240410
  Serious: No
  Sender: FDA-Public Use
  Company Number: US-BRISTOL-MYERS SQUIBB COMPANY-2023-145562

PATIENT
  Age: 88 Year
  Sex: Male

DRUGS (2)
  1. REVLIMID [Suspect]
     Active Substance: LENALIDOMIDE
     Indication: B-cell lymphoma
     Route: 048
  2. AMLODIPINE BESYLATE [Suspect]
     Active Substance: AMLODIPINE BESYLATE
     Indication: Product used for unknown indication

REACTIONS (14)
  - Pain in extremity [Unknown]
  - Fatigue [Unknown]
  - Off label use [Unknown]
  - Hypotension [Recovered/Resolved]
  - Dizziness [Recovered/Resolved]
  - Pruritus [Unknown]
  - Rash [Unknown]
  - Decreased appetite [Unknown]
  - Weight decreased [Unknown]
  - Dry skin [Unknown]
  - Red blood cell count decreased [Unknown]
  - Hypoacusis [Unknown]
  - Haemoglobin decreased [Unknown]
  - Ear pruritus [Unknown]
